FAERS Safety Report 11348399 (Version 4)
Quarter: 2015Q4

REPORT INFORMATION
  Report Type: Report from Study
  Country: US (occurrence: US)
  Receive Date: 20150806
  Receipt Date: 20151207
  Transmission Date: 20160304
  Serious: No
  Sender: FDA-Public Use
  Company Number: PHEH2015US009562

PATIENT
  Age: 44 Year
  Sex: Female
  Weight: 102.4 kg

DRUGS (12)
  1. MECLIZINE [Concomitant]
     Active Substance: MECLIZINE\MECLIZINE HYDROCHLORIDE
     Indication: PRODUCT USED FOR UNKNOWN INDICATION
     Dosage: 25 MG, BID
     Route: 048
     Dates: start: 20150715
  2. PAXIL [Concomitant]
     Active Substance: PAROXETINE HYDROCHLORIDE
     Dosage: 30 MG, UNK
     Route: 048
     Dates: start: 20150902
  3. EXTAVIA [Suspect]
     Active Substance: INTERFERON BETA-1B
     Dosage: 0.125 MG (0.5 ML), WEEK 3-4, QOD
     Route: 058
  4. NAPROXEN. [Concomitant]
     Active Substance: NAPROXEN
     Indication: PRODUCT USED FOR UNKNOWN INDICATION
     Dosage: 500 MG, QD
     Route: 048
     Dates: start: 20150114
  5. SUMITRAN//SUMATRIPTAN SUCCINATE [Concomitant]
     Indication: PRODUCT USED FOR UNKNOWN INDICATION
     Dosage: 1 DF, PRN
     Route: 048
     Dates: start: 20150619
  6. SUMITRAN//SUMATRIPTAN SUCCINATE [Concomitant]
     Dosage: 1 DF, PRN
     Route: 048
     Dates: start: 20150715
  7. PAXIL [Concomitant]
     Active Substance: PAROXETINE HYDROCHLORIDE
     Indication: PRODUCT USED FOR UNKNOWN INDICATION
     Dosage: 20 MG (AT SUPPER AS TOLERATED), QD
     Route: 048
     Dates: start: 20150715, end: 20150902
  8. EXTAVIA [Suspect]
     Active Substance: INTERFERON BETA-1B
     Dosage: 0.187 MG (0.75 ML), WEEK 5-6, QOD
     Route: 058
  9. EXTAVIA [Suspect]
     Active Substance: INTERFERON BETA-1B
     Indication: MULTIPLE SCLEROSIS
     Dosage: 0.3 MG, QOD
     Route: 058
     Dates: start: 20150313
  10. AMANTADINE [Concomitant]
     Active Substance: AMANTADINE
     Indication: PRODUCT USED FOR UNKNOWN INDICATION
     Dosage: 100 MG, BID (AS TOLERATED)
     Route: 048
     Dates: start: 20150513
  11. EXTAVIA [Suspect]
     Active Substance: INTERFERON BETA-1B
     Dosage: 0.3 MG, QOD
     Route: 058
     Dates: start: 20150327
  12. EXTAVIA [Suspect]
     Active Substance: INTERFERON BETA-1B
     Dosage: 0.25 MG (1 ML), WEEK 7+, QOD
     Route: 058

REACTIONS (12)
  - Memory impairment [Unknown]
  - Diplopia [Recovering/Resolving]
  - Injection site pain [Unknown]
  - Dizziness [Unknown]
  - Injection site discolouration [Unknown]
  - Lhermitte^s sign [Recovering/Resolving]
  - Injection site swelling [Recovered/Resolved]
  - Visual impairment [Unknown]
  - Blood pressure increased [Recovering/Resolving]
  - Stress [Unknown]
  - Vitamin D deficiency [Unknown]
  - Weight decreased [Unknown]

NARRATIVE: CASE EVENT DATE: 20150327
